FAERS Safety Report 8821085 (Version 1)
Quarter: 2012Q4

REPORT INFORMATION
  Report Type: 
  Country: US (occurrence: US)
  Receive Date: 20121002
  Receipt Date: 20121002
  Transmission Date: 20130627
  Serious: Yes (Hospitalization, Other)
  Sender: FDA-Public Use
  Company Number: US-ROCHE-1131103

PATIENT
  Sex: Male

DRUGS (8)
  1. RITUXAN [Suspect]
     Indication: CHRONIC LYMPHOCYTIC LEUKAEMIA
     Route: 042
     Dates: start: 20020314
  2. RITUXAN [Suspect]
     Route: 065
  3. FLUDARA [Concomitant]
     Route: 042
     Dates: start: 20020314
  4. ANZEMET [Concomitant]
     Route: 042
  5. ZOFRAN [Concomitant]
  6. NEUPOGEN [Concomitant]
     Route: 058
  7. NEUPOGEN [Concomitant]
     Route: 058
     Dates: start: 20020425
  8. LEVAQUIN [Concomitant]
     Route: 048

REACTIONS (4)
  - Pneumonia [Unknown]
  - Neutropenia [Unknown]
  - Deep vein thrombosis [Unknown]
  - Constipation [Unknown]
